FAERS Safety Report 10195805 (Version 4)
Quarter: 2015Q4

REPORT INFORMATION
  Report Type: Spontaneous
  Country: TW (occurrence: TW)
  Receive Date: 20140527
  Receipt Date: 20151231
  Transmission Date: 20160304
  Serious: Yes (Hospitalization, Other)
  Sender: FDA-Public Use
  Company Number: TW-AMGEN-TWNSP2014038754

PATIENT
  Age: 73 Year
  Sex: Female

DRUGS (5)
  1. ENBREL [Suspect]
     Active Substance: ETANERCEPT
     Dosage: UNK
     Route: 065
  2. ENBREL [Suspect]
     Active Substance: ETANERCEPT
     Indication: ANKYLOSING SPONDYLITIS
     Dosage: 25 MG, PER FIVE DAYS
     Route: 058
     Dates: start: 2012, end: 201405
  3. ENBREL [Suspect]
     Active Substance: ETANERCEPT
     Dosage: 50 MG, EVERY 10 TO 20 DAYS
     Route: 058
     Dates: start: 201502
  4. ENBREL [Suspect]
     Active Substance: ETANERCEPT
     Dosage: 50 MG, AS NECESSARY
     Route: 065
     Dates: start: 2015, end: 20151107
  5. ENBREL [Suspect]
     Active Substance: ETANERCEPT
     Dosage: 50 MG, PER TEN DAYS
     Route: 058
     Dates: start: 20150213

REACTIONS (9)
  - Abdominal pain lower [Unknown]
  - Intentional product misuse [Unknown]
  - Pain [Unknown]
  - C-reactive protein increased [Unknown]
  - Joint stiffness [Unknown]
  - Arthralgia [Unknown]
  - Ovarian neoplasm [Not Recovered/Not Resolved]
  - Joint swelling [Unknown]
  - Red blood cell sedimentation rate increased [Unknown]

NARRATIVE: CASE EVENT DATE: 20141022
